FAERS Safety Report 4680602-8 (Version None)
Quarter: 2005Q2

REPORT INFORMATION
  Report Type: 
  Country: None (occurrence: None)
  Receive Date: 20050531
  Receipt Date: 20050126
  Transmission Date: 20051028
  Serious: Yes (Hospitalization)
  Sender: FDA-Public Use
  Company Number: 2005017164

PATIENT
  Age: 52 Year
  Sex: Female
  Weight: 73.9363 kg

DRUGS (1)
  1. SOLU-MEDROL [Suspect]
     Indication: MULTIPLE SCLEROSIS
     Dosage: UNKNOWN, INTRAVEOUS
     Route: 042
     Dates: start: 20000101, end: 20040601

REACTIONS (15)
  - ERYTHEMA [None]
  - HEART RATE DECREASED [None]
  - HYPOTENSION [None]
  - HYPOTHYROIDISM [None]
  - INJECTION SITE HAEMORRHAGE [None]
  - INSOMNIA [None]
  - LIVER DISORDER [None]
  - MULTIPLE SCLEROSIS [None]
  - OVERDOSE [None]
  - PSYCHOTIC DISORDER [None]
  - RASH SCALY [None]
  - SKIN BURNING SENSATION [None]
  - SKIN DISCOLOURATION [None]
  - SWELLING [None]
  - WEIGHT INCREASED [None]
